FAERS Safety Report 8255441 (Version 2)
Quarter: 2018Q3

REPORT INFORMATION
  Report Type: Spontaneous
  Country: FR (occurrence: FR)
  Receive Date: 20111118
  Receipt Date: 20180723
  Transmission Date: 20181010
  Serious: Yes (Hospitalization)
  Sender: FDA-Public Use
  Company Number: FR-BAYER-2011-110541

PATIENT
  Age: 66 Year
  Sex: Female

DRUGS (5)
  1. METFORMINE [Concomitant]
     Active Substance: METFORMIN HYDROCHLORIDE
  2. TAHOR [Concomitant]
     Active Substance: ATORVASTATIN CALCIUM
  3. CIFLOX [Suspect]
     Active Substance: CIPROFLOXACIN
     Indication: PYELONEPHRITIS
     Dosage: 500 MG, UNK
     Route: 048
     Dates: start: 20111009, end: 20111015
  4. HYZAAR [Concomitant]
     Active Substance: HYDROCHLOROTHIAZIDE\LOSARTAN POTASSIUM
  5. GLIMEPIRIDE. [Concomitant]
     Active Substance: GLIMEPIRIDE

REACTIONS (1)
  - Hypoglycaemic coma [Not Recovered/Not Resolved]

NARRATIVE: CASE EVENT DATE: 20111014
